FAERS Safety Report 22350516 (Version 1)
Quarter: 2023Q2

REPORT INFORMATION
  Report Type: Spontaneous
  Country: US (occurrence: None)
  Receive Date: 20230519
  Receipt Date: 20230519
  Transmission Date: 20230722
  Serious: No
  Sender: FDA-Public Use
  Company Number: None

PATIENT
  Sex: Male

DRUGS (1)
  1. TALTZ [Suspect]
     Active Substance: IXEKIZUMAB
     Indication: Psoriatic arthropathy
     Dosage: 80MG OTHER SUBCUTANEOUS
     Route: 058

REACTIONS (4)
  - Erythema [None]
  - Pain [None]
  - Disease progression [None]
  - Arthralgia [None]
